FAERS Safety Report 16003895 (Version 12)
Quarter: 2020Q1

REPORT INFORMATION
  Report Type: Spontaneous
  Country: CA (occurrence: CA)
  Receive Date: 20190226
  Receipt Date: 20200321
  Transmission Date: 20200409
  Serious: Yes (Other)
  Sender: FDA-Public Use
  Company Number: CA-CELLTRION INC.-2018CA024223

PATIENT

DRUGS (33)
  1. INFLECTRA [Suspect]
     Active Substance: INFLIXIMAB-DYYB
     Dosage: 585 MG (7.5 MG/KG), EVERY 4 WEEKS
     Route: 042
     Dates: start: 20181219
  2. INFLECTRA [Suspect]
     Active Substance: INFLIXIMAB-DYYB
     Dosage: 800 MG ((10 MG/KG) Q 4 WEEKS)
     Route: 042
     Dates: start: 20190506
  3. METRONIDAZOLE. [Concomitant]
     Active Substance: METRONIDAZOLE
     Dosage: UNK
     Route: 065
     Dates: start: 20180724
  4. VITAMIN B12 [Concomitant]
     Active Substance: CYANOCOBALAMIN
     Dosage: UNK, WEEKLY
  5. AZATHIOPRINE. [Concomitant]
     Active Substance: AZATHIOPRINE
     Dosage: 50 MG, 2X/DAY (2 TABS)
     Route: 048
  6. INFLECTRA [Suspect]
     Active Substance: INFLIXIMAB-DYYB
     Dosage: 800 MG ((10 MG/KG) Q 4 WEEKS)
     Route: 042
     Dates: start: 20191025
  7. DIPHENHYDRAMINE. [Concomitant]
     Active Substance: DIPHENHYDRAMINE
     Dosage: 25 MG, UNK
     Route: 048
  8. METHYLPREDNISOLONE. [Concomitant]
     Active Substance: METHYLPREDNISOLONE
     Dosage: 20 MG, UNK
     Route: 042
  9. INFLECTRA [Suspect]
     Active Substance: INFLIXIMAB-DYYB
     Dosage: 780 MG, UNK (AS ONE TIME DOSE)
     Route: 042
     Dates: start: 20180818, end: 20180818
  10. INFLECTRA [Suspect]
     Active Substance: INFLIXIMAB-DYYB
     Dosage: 585 MG (7.5 MG/KG), EVERY 4 WEEKS
     Route: 042
     Dates: start: 20181012
  11. INFLECTRA [Suspect]
     Active Substance: INFLIXIMAB-DYYB
     Dosage: 585 MG (7.5 MG/KG), EVERY 4 WEEKS
     Route: 042
     Dates: start: 20181109
  12. INFLECTRA [Suspect]
     Active Substance: INFLIXIMAB-DYYB
     Dosage: 585 MG (7.5 MG/KG), EVERY 4 WEEKS
     Route: 042
     Dates: start: 20190211
  13. INFLECTRA [Suspect]
     Active Substance: INFLIXIMAB-DYYB
     Dosage: 800 MG ((10 MG/KG) Q 4 WEEKS)
     Route: 042
     Dates: start: 20200201
  14. AZATHIOPRINE. [Concomitant]
     Active Substance: AZATHIOPRINE
     Dosage: 2 DF, 2X/DAY
     Route: 048
     Dates: start: 2014
  15. ACETAMINOPHEN. [Concomitant]
     Active Substance: ACETAMINOPHEN
     Dosage: 650 MG, UNK
     Route: 048
  16. INFLECTRA [Suspect]
     Active Substance: INFLIXIMAB-DYYB
     Indication: CROHN^S DISEASE
     Dosage: 380 MG, EVERY 0, 2, 6 WEEKS EVERY 8 WEEKS
     Route: 042
     Dates: start: 20180119, end: 20180530
  17. INFLECTRA [Suspect]
     Active Substance: INFLIXIMAB-DYYB
     Dosage: 585 MG (7.5 MG/KG), EVERY 4 WEEKS
     Route: 042
     Dates: start: 20190410
  18. INFLECTRA [Suspect]
     Active Substance: INFLIXIMAB-DYYB
     Dosage: 800 MG ((10 MG/KG) Q 4 WEEKS)
     Route: 042
     Dates: start: 20200229
  19. CIPROFLOXACIN. [Concomitant]
     Active Substance: CIPROFLOXACIN
     Dosage: 500 MG, 3X/DAY
     Route: 048
     Dates: start: 20180724
  20. METRONIDAZOLE. [Concomitant]
     Active Substance: METRONIDAZOLE
     Dosage: 500 MG, 3X/DAY
     Route: 048
     Dates: start: 20180724
  21. AZATHIOPRINE. [Concomitant]
     Active Substance: AZATHIOPRINE
     Dosage: 100 MG, 2X/DAY
     Route: 048
  22. VITAMIN D [COLECALCIFEROL] [Concomitant]
     Active Substance: CHOLECALCIFEROL
     Dosage: 1000 IU, UNK
     Route: 065
  23. INFLECTRA [Suspect]
     Active Substance: INFLIXIMAB-DYYB
     Dosage: 585 MG (7.5 MG/KG), EVERY 4 WEEKS
     Route: 042
     Dates: start: 20181109
  24. INFLECTRA [Suspect]
     Active Substance: INFLIXIMAB-DYYB
     Dosage: 585 MG (7.5 MG/KG), EVERY 4 WEEKS
     Route: 042
     Dates: start: 20190410
  25. CIPROFLOXACIN. [Concomitant]
     Active Substance: CIPROFLOXACIN
     Dosage: UNK
     Route: 065
     Dates: start: 20180724
  26. METHYLPREDNISOLONE. [Concomitant]
     Active Substance: METHYLPREDNISOLONE
     Dosage: 20 MG, UNK
     Route: 042
     Dates: start: 20200229
  27. IMURAN [Concomitant]
     Active Substance: AZATHIOPRINE
     Dosage: 50 MG, 1X/DAY
     Route: 048
     Dates: start: 20190502
  28. INFLECTRA [Suspect]
     Active Substance: INFLIXIMAB-DYYB
     Dosage: 585 MG (7.5 MG/KG), EVERY 4 WEEKS
     Route: 042
     Dates: start: 20190115
  29. INFLECTRA [Suspect]
     Active Substance: INFLIXIMAB-DYYB
     Dosage: 800 MG ((10 MG/KG) Q 4 WEEKS)
     Route: 042
     Dates: start: 20191122
  30. INFLECTRA [Suspect]
     Active Substance: INFLIXIMAB-DYYB
     Dosage: 800 MG ((10 MG/KG) Q 4 WEEKS)
     Route: 042
     Dates: start: 20191221
  31. DIPHENHYDRAMINE. [Concomitant]
     Active Substance: DIPHENHYDRAMINE
     Dosage: 25 MG, UNK
     Route: 048
     Dates: start: 20200229
  32. INFLECTRA [Suspect]
     Active Substance: INFLIXIMAB-DYYB
     Dosage: 585 MG (7.5 MG/KG), EVERY 4 WEEKS
     Route: 042
     Dates: start: 20180921
  33. INFLECTRA [Suspect]
     Active Substance: INFLIXIMAB-DYYB
     Dosage: 585 MG (7.5 MG/KG), EVERY 4 WEEKS
     Route: 042
     Dates: start: 20190211

REACTIONS (24)
  - Dyspnoea [Recovering/Resolving]
  - Intentional product use issue [Unknown]
  - Aeromonas infection [Unknown]
  - Blood pressure fluctuation [Not Recovered/Not Resolved]
  - Constipation [Unknown]
  - Abdominal pain upper [Recovering/Resolving]
  - Malaise [Not Recovered/Not Resolved]
  - Condition aggravated [Unknown]
  - Anal fistula [Unknown]
  - Off label use [Unknown]
  - Pyrexia [Unknown]
  - Product use issue [Unknown]
  - Kidney infection [Unknown]
  - Skin fissures [Not Recovered/Not Resolved]
  - Arthralgia [Not Recovered/Not Resolved]
  - Disease recurrence [Not Recovered/Not Resolved]
  - Fatigue [Recovering/Resolving]
  - Anal stenosis [Unknown]
  - Drug level below therapeutic [Unknown]
  - Palpitations [Recovering/Resolving]
  - Influenza [Unknown]
  - Diarrhoea [Recovering/Resolving]
  - Faecal calprotectin increased [Recovering/Resolving]
  - Inappropriate schedule of product administration [Unknown]

NARRATIVE: CASE EVENT DATE: 201807
